FAERS Safety Report 5941551-8 (Version None)
Quarter: 2008Q4

REPORT INFORMATION
  Report Type: 
  Country: None (occurrence: None)
  Receive Date: 20081105
  Receipt Date: 20081029
  Transmission Date: 20090506
  Serious: Yes (Other)
  Sender: FDA-Public Use
  Company Number: JP-NOVOPROD-279525

PATIENT
  Sex: Male
  Weight: 15 kg

DRUGS (2)
  1. NORDITROPIN NORDIFLEX [Suspect]
     Indication: CHONDRODYSTROPHY
     Dosage: 5 MG, QW
     Route: 058
     Dates: start: 20071214, end: 20080706
  2. NORDITROPIN NORDIFLEX [Suspect]
     Dosage: .75 MG, QD
     Dates: start: 20081020

REACTIONS (1)
  - BRAIN STEM SYNDROME [None]
